FAERS Safety Report 8422170-0 (Version None)
Quarter: 2012Q2

REPORT INFORMATION
  Report Type: 
  Country: None (occurrence: None)
  Receive Date: 20120608
  Receipt Date: 20120607
  Transmission Date: 20120825
  Serious: Yes (Death, Life-Threatening, Hospitalization, Other)
  Sender: FDA-Public Use
  Company Number: PHHY2012JP029986

PATIENT
  Sex: Male
  Weight: 45 kg

DRUGS (8)
  1. REZALTAS COMBINATION [Concomitant]
     Indication: HYPERTENSION
     Dosage: 1 DF, UNK
     Route: 048
     Dates: start: 20110411
  2. INDAPAMIDE [Concomitant]
     Indication: HYPERTENSION
     Dosage: 1 MG, UNK
     Route: 048
     Dates: start: 20110411
  3. URIEF [Concomitant]
     Indication: DYSURIA
     Dosage: 4 MG, UNK
     Route: 048
     Dates: start: 20110224
  4. VEEN D [Concomitant]
     Dosage: 200 ML, (2 BOTTLES)
  5. INDAPAMIDE [Concomitant]
     Dosage: 1 MG, UNK
     Route: 048
     Dates: start: 20110411
  6. RASILEZ [Suspect]
     Indication: HYPERTENSION
     Dosage: 150 MG, DAILY
     Route: 048
     Dates: start: 20110906, end: 20120207
  7. CYANOCOBALAMIN [Concomitant]
     Indication: ANAEMIA
     Dosage: 1 DF, UNK
     Route: 048
     Dates: start: 20111227
  8. THIAMINE DISULFIDE [Concomitant]

REACTIONS (11)
  - PNEUMONIA ASPIRATION [None]
  - CEREBRAL INFARCTION [None]
  - GENERAL PHYSICAL HEALTH DETERIORATION [None]
  - COORDINATION ABNORMAL [None]
  - FEELING COLD [None]
  - GAIT DISTURBANCE [None]
  - DEHYDRATION [None]
  - CEREBROVASCULAR DISORDER [None]
  - FATIGUE [None]
  - BLOOD PRESSURE SYSTOLIC INCREASED [None]
  - RESPIRATORY FAILURE [None]
